FAERS Safety Report 15348318 (Version 2)
Quarter: 2018Q3

REPORT INFORMATION
  Report Type: Spontaneous
  Country: CH (occurrence: CH)
  Receive Date: 20180904
  Receipt Date: 20180920
  Transmission Date: 20181010
  Serious: Yes (Other)
  Sender: FDA-Public Use
  Company Number: CH-JNJFOC-20180841430

PATIENT
  Age: 5 Decade
  Sex: Male
  Weight: 66 kg

DRUGS (6)
  1. SIMPONI [Suspect]
     Active Substance: GOLIMUMAB
     Indication: SPONDYLITIS
     Route: 058
     Dates: start: 20180131, end: 20180619
  2. SIMPONI [Suspect]
     Active Substance: GOLIMUMAB
     Indication: ANKYLOSING SPONDYLITIS
     Route: 058
     Dates: start: 20180131, end: 20180619
  3. SIMPONI [Suspect]
     Active Substance: GOLIMUMAB
     Indication: UVEITIS
     Route: 058
     Dates: start: 20180131, end: 20180619
  4. SIMPONI [Suspect]
     Active Substance: GOLIMUMAB
     Indication: ANKYLOSING SPONDYLITIS
     Route: 058
     Dates: start: 2018, end: 20180630
  5. SIMPONI [Suspect]
     Active Substance: GOLIMUMAB
     Indication: SPONDYLITIS
     Route: 058
     Dates: start: 2018, end: 20180630
  6. SIMPONI [Suspect]
     Active Substance: GOLIMUMAB
     Indication: UVEITIS
     Route: 058
     Dates: start: 2018, end: 20180630

REACTIONS (1)
  - Neuroendocrine tumour [Recovered/Resolved]

NARRATIVE: CASE EVENT DATE: 20180628
